FAERS Safety Report 6669306-X (Version None)
Quarter: 2010Q2

REPORT INFORMATION
  Report Type: 
  Country: None (occurrence: None)
  Receive Date: 20100406
  Receipt Date: 20100326
  Transmission Date: 20101027
  Serious: Yes (Other)
  Sender: FDA-Public Use
  Company Number: GB-GILEAD-2010-0028164

PATIENT
  Sex: Male

DRUGS (4)
  1. TRUVADA [Suspect]
     Indication: HIV INFECTION
  2. REYATAZ [Suspect]
  3. COMBIVIR [Concomitant]
  4. KALETRA [Concomitant]

REACTIONS (1)
  - DRUG RESISTANCE [None]
